FAERS Safety Report 6249980-2 (Version None)
Quarter: 2009Q2

REPORT INFORMATION
  Report Type: 
  Country: None (occurrence: None)
  Receive Date: 20090625
  Receipt Date: 20090616
  Transmission Date: 20091009
  Serious: Yes (Other)
  Sender: FDA-Public Use
  Company Number: 299482

PATIENT
  Age: 54 Year
  Sex: Female
  Weight: 68 kg

DRUGS (6)
  1. BUPIVACAINE [Suspect]
     Indication: PAIN MANAGEMENT
     Dosage: INJECTION
     Route: 042
     Dates: start: 20090603, end: 20090603
  2. ISOVUE-128 [Suspect]
     Indication: PAIN
     Dosage: ONE TIME, EPIDURAL
     Route: 008
     Dates: start: 20090603, end: 20090603
  3. KENALOG-40 [Suspect]
     Indication: PAIN
     Dosage: ONE TIME, EPIDURAL
     Route: 008
     Dates: start: 20090603, end: 20090603
  4. LIDOCAINE [Concomitant]
  5. IBUPROFEN [Concomitant]
  6. PERCOCET [Concomitant]

REACTIONS (6)
  - BLOOD PRESSURE SYSTOLIC DECREASED [None]
  - CARDIO-RESPIRATORY ARREST [None]
  - FEELING ABNORMAL [None]
  - HEART RATE DECREASED [None]
  - HYPOAESTHESIA [None]
  - UNRESPONSIVE TO STIMULI [None]
